FAERS Safety Report 22521456 (Version 3)
Quarter: 2023Q2

REPORT INFORMATION
  Report Type: Spontaneous
  Country: US (occurrence: US)
  Receive Date: 20230605
  Receipt Date: 20230613
  Transmission Date: 20230722
  Serious: No
  Sender: FDA-Public Use
  Company Number: US-PFIZER INC-PV202300099220

PATIENT
  Age: 56 Year
  Sex: Female

DRUGS (1)
  1. CIBINQO [Suspect]
     Active Substance: ABROCITINIB
     Indication: Hand dermatitis
     Dosage: UNK, 1X/DAY

REACTIONS (3)
  - Hepatic steatosis [Unknown]
  - Tuberculin test positive [Unknown]
  - Off label use [Unknown]
